FAERS Safety Report 7779948-6 (Version None)
Quarter: 2011Q3

REPORT INFORMATION
  Report Type: 
  Country: None (occurrence: None)
  Receive Date: 20110927
  Receipt Date: 20110921
  Transmission Date: 20111222
  Serious: Yes (Hospitalization)
  Sender: FDA-Public Use
  Company Number: DE-BRISTOL-MYERS SQUIBB COMPANY-16081853

PATIENT
  Age: 77 Year
  Sex: Male
  Weight: 106 kg

DRUGS (4)
  1. DICLOFENAC [Concomitant]
     Indication: PAIN
     Route: 048
  2. TILIDINE [Concomitant]
     Indication: PAIN
     Route: 048
  3. IPILIMUMAB [Suspect]
     Indication: MALIGNANT MELANOMA
     Route: 042
     Dates: start: 20110826, end: 20110826
  4. CYMBALTA [Concomitant]
     Indication: DEPRESSION
     Route: 048

REACTIONS (1)
  - PAIN IN EXTREMITY [None]
